FAERS Safety Report 6279884-0 (Version None)
Quarter: 2009Q3

REPORT INFORMATION
  Report Type: 
  Country: None (occurrence: None)
  Receive Date: 20090723
  Receipt Date: 20090721
  Transmission Date: 20100115
  Serious: Yes (Death, Hospitalization, Other)
  Sender: FDA-Public Use
  Company Number: PHHY2009GB28910

PATIENT
  Sex: Female

DRUGS (8)
  1. CLOZARIL [Suspect]
     Indication: SCHIZOPHRENIA
     Dosage: 600 MG, DAILY
     Route: 048
     Dates: start: 19981110
  2. SERTRALINE [Concomitant]
     Indication: DEPRESSION
  3. BRUFEN [Concomitant]
  4. LANSOPRAZOLE [Concomitant]
     Indication: PEPTIC ULCER
     Dosage: 30 MG DAILY
     Route: 048
  5. VALPROATE SEMISODIUM [Concomitant]
  6. DEPAKOTE [Concomitant]
     Indication: SCHIZOPHRENIA
     Dosage: UNK
     Route: 048
  7. DEPAKOTE [Concomitant]
     Indication: MOOD SWINGS
  8. ALBUTEROL [Concomitant]
     Indication: ASTHMA
     Dosage: 2 TABLETS, PRN

REACTIONS (10)
  - ABDOMINAL COMPARTMENT SYNDROME [None]
  - ABDOMINAL PAIN [None]
  - CONSTIPATION [None]
  - DYSPNOEA [None]
  - FAECALOMA [None]
  - HYPERHIDROSIS [None]
  - INTESTINAL INFARCTION [None]
  - PALLOR [None]
  - STRESS [None]
  - SURGERY [None]
